FAERS Safety Report 6111769-2 (Version None)
Quarter: 2009Q1

REPORT INFORMATION
  Report Type: 
  Country: None (occurrence: None)
  Receive Date: 20090311
  Receipt Date: 20080923
  Transmission Date: 20090719
  Serious: No
  Sender: FDA-Public Use
  Company Number: US-TYCO HEALTHCARE/MALLINCKRODT-T200801546

PATIENT

DRUGS (1)
  1. RESTORIL [Suspect]
     Indication: INSOMNIA
     Dosage: 7.5 MG, QHS (ONE CAPSULE AT NIGHT)
     Route: 048
     Dates: start: 20080801

REACTIONS (2)
  - CHILLS [None]
  - HYPERHIDROSIS [None]
